FAERS Safety Report 9050279 (Version 3)
Quarter: 2013Q2

REPORT INFORMATION
  Report Type: Report from Study
  Country: US (occurrence: US)
  Receive Date: 20130205
  Receipt Date: 20130520
  Transmission Date: 20140414
  Serious: Yes (Hospitalization)
  Sender: FDA-Public Use
  Company Number: US-GLAXOSMITHKLINE-A0925855B

PATIENT
  Age: 65 Year
  Sex: Female
  Weight: 70.5 kg

DRUGS (22)
  1. LYMPHOSTAT B [Suspect]
     Indication: SYSTEMIC LUPUS ERYTHEMATOSUS
     Dosage: 4MGK CYCLIC
     Route: 042
     Dates: start: 20031120
  2. RANITIDINE [Concomitant]
     Indication: GASTROOESOPHAGEAL REFLUX DISEASE
     Dosage: 1TAB TWICE PER DAY
     Route: 048
     Dates: start: 20070405, end: 20130107
  3. ZOLOFT [Concomitant]
     Indication: DEPRESSION
     Dosage: 100MG PER DAY
     Route: 048
     Dates: start: 20071102
  4. WELLBUTRIN [Concomitant]
     Indication: DEPRESSION
     Dosage: 200MG PER DAY
     Route: 048
     Dates: start: 20071102
  5. PREDNISONE [Concomitant]
     Indication: SYSTEMIC LUPUS ERYTHEMATOSUS
     Route: 048
     Dates: start: 20070307
  6. ACIPHEX [Concomitant]
     Indication: GASTROOESOPHAGEAL REFLUX DISEASE
     Dosage: 1TAB ALTERNATE DAYS
     Route: 048
     Dates: start: 20090228
  7. IMURAN [Concomitant]
     Indication: SYSTEMIC LUPUS ERYTHEMATOSUS
     Dosage: 50MG PER DAY
     Route: 048
     Dates: start: 20110608
  8. LASIX [Concomitant]
     Indication: HYPERTENSION
     Dosage: 40MG PER DAY
     Route: 048
     Dates: start: 20120815
  9. VICODIN [Concomitant]
     Indication: ARTHRITIS
     Dosage: 1TAB AS REQUIRED
     Route: 048
     Dates: start: 20031101
  10. HYDROXYCHLOROQUINE [Concomitant]
     Indication: SYSTEMIC LUPUS ERYTHEMATOSUS
     Dosage: 200MG TWICE PER DAY
     Route: 048
     Dates: start: 1972
  11. ACYCLOVIR [Concomitant]
     Indication: HERPES SIMPLEX
     Dosage: 200MG AS REQUIRED
     Route: 048
     Dates: start: 2002
  12. FEM HRT [Concomitant]
     Indication: OESTROGEN REPLACEMENT THERAPY
     Dosage: 1TAB PER DAY
     Route: 048
     Dates: start: 20050301
  13. SOMA [Concomitant]
     Indication: BACK PAIN
     Dosage: 350MG PER DAY
     Route: 048
     Dates: start: 20070130
  14. LASIX [Concomitant]
     Dates: start: 20070202
  15. DIAZEPAM [Concomitant]
     Indication: INSOMNIA
     Dosage: 5MG PER DAY
     Route: 048
     Dates: start: 20061102
  16. POTASSIUM [Concomitant]
     Dosage: 1TAB PER DAY
     Route: 048
     Dates: start: 20050301
  17. OMEPRAZOLE [Concomitant]
     Indication: GASTROOESOPHAGEAL REFLUX DISEASE
     Dosage: 40MG PER DAY
     Route: 048
     Dates: start: 20120801
  18. NAPROXEN [Concomitant]
     Indication: ARTHRITIS
     Dosage: 30MG PER DAY
     Dates: start: 20121102
  19. PRILOSEC [Concomitant]
     Indication: GASTROOESOPHAGEAL REFLUX DISEASE
     Dosage: 20MG PER DAY
     Route: 048
     Dates: start: 20081021
  20. BENTYL [Concomitant]
     Indication: IRRITABLE BOWEL SYNDROME
     Dosage: 10MG TWICE PER DAY
     Route: 048
  21. AZATHIOPRINE [Concomitant]
     Indication: SYSTEMIC LUPUS ERYTHEMATOSUS
     Dosage: 50MG TWICE PER DAY
     Route: 048
     Dates: start: 20080216
  22. FLAGYL [Concomitant]
     Indication: IRRITABLE BOWEL SYNDROME
     Dosage: 250MG TWICE PER DAY
     Route: 048
     Dates: start: 20090625

REACTIONS (4)
  - Pneumonia [Recovered/Resolved]
  - Acute respiratory failure [Recovered/Resolved]
  - Sepsis [Recovered/Resolved]
  - Renal failure acute [Recovered/Resolved]
